FAERS Safety Report 16130154 (Version 1)
Quarter: 2019Q1

REPORT INFORMATION
  Report Type: Spontaneous
  Country: IT (occurrence: IT)
  Receive Date: 20190328
  Receipt Date: 20190328
  Transmission Date: 20190418
  Serious: Yes (Hospitalization, Other)
  Sender: FDA-Public Use
  Company Number: IT-ASTRAZENECA-2019SE44943

PATIENT
  Age: 3729 Week
  Sex: Male

DRUGS (10)
  1. BENRALIZUMAB. [Suspect]
     Active Substance: BENRALIZUMAB
     Indication: ASTHMA
     Dosage: 30.0MG UNKNOWN
     Route: 058
     Dates: start: 20181211
  2. NORVASC [Concomitant]
     Active Substance: AMLODIPINE BESYLATE
  3. COUMADIN [Concomitant]
     Active Substance: WARFARIN SODIUM
  4. FOSTER [Concomitant]
     Active Substance: BECLOMETHASONE\FORMOTEROL
  5. TRIATEC [Concomitant]
  6. TARVAST [Concomitant]
  7. CARDICOR [Concomitant]
     Active Substance: BISOPROLOL
  8. ASPIRINETTA [Concomitant]
     Active Substance: ASPIRIN
  9. BRILIQUE [Concomitant]
     Active Substance: TICAGRELOR
  10. PANTORC [Concomitant]
     Active Substance: PANTOPRAZOLE SODIUM

REACTIONS (2)
  - Coronary artery occlusion [Unknown]
  - Acute myocardial infarction [Unknown]

NARRATIVE: CASE EVENT DATE: 20190308
